FAERS Safety Report 12758209 (Version 1)
Quarter: 2016Q3

REPORT INFORMATION
  Report Type: Spontaneous
  Country: US (occurrence: US)
  Receive Date: 20160915
  Receipt Date: 20160915
  Transmission Date: 20161109
  Serious: No
  Sender: FDA-Public Use
  Company Number: None

PATIENT
  Sex: Female

DRUGS (1)
  1. XELJANZ [Suspect]
     Active Substance: TOFACITINIB CITRATE
     Indication: RHEUMATOID ARTHRITIS
     Route: 048
     Dates: start: 20160811

REACTIONS (6)
  - Nausea [None]
  - Neuropathy peripheral [None]
  - Dry mouth [None]
  - Headache [None]
  - Dizziness [None]
  - Hyperaesthesia [None]
